FAERS Safety Report 7647749-5 (Version None)
Quarter: 2011Q3

REPORT INFORMATION
  Report Type: 
  Country: None (occurrence: None)
  Receive Date: 20110711
  Receipt Date: 20110321
  Transmission Date: 20111222
  Serious: Yes (Other)
  Sender: FDA-Public Use
  Company Number: IPC201103-000359

PATIENT

DRUGS (6)
  1. METOCLOPRAMIDE HYDROCHLORIDE [Suspect]
     Dosage: 10 MG, ORAL
     Route: 048
     Dates: start: 20060401, end: 20090601
  2. METOCLOPRAMIDE [Suspect]
     Dosage: 10 MG, ORAL
     Route: 048
     Dates: start: 20060401, end: 20090601
  3. METOCLOPRAMIDE HYDROCHLORIDE [Suspect]
     Dosage: 10 MG, ORAL
     Route: 048
     Dates: start: 20060401, end: 20090601
  4. METOCLOPRAMIDE [Suspect]
     Dosage: 10 MG, ORAL
     Route: 048
     Dates: start: 20060401, end: 20090601
  5. METOCLOPRAMIDE HYDROCHLORIDE [Suspect]
     Dosage: 10 MG, ORAL
     Route: 048
     Dates: start: 20060401, end: 20090601
  6. REGLAN [Suspect]
     Dates: start: 20060401, end: 20090601

REACTIONS (1)
  - TARDIVE DYSKINESIA [None]
